FAERS Safety Report 8144904-5 (Version None)
Quarter: 2012Q1

REPORT INFORMATION
  Report Type: 
  Country: None (occurrence: None)
  Receive Date: 20120217
  Receipt Date: 20120202
  Transmission Date: 20120608
  Serious: Yes (Life-Threatening, Hospitalization)
  Sender: FDA-Public Use
  Company Number: NO-MERCK-1202NOR00005

PATIENT
  Age: 77 Year
  Sex: Male

DRUGS (5)
  1. ZOCOR [Suspect]
     Indication: HYPERLIPIDAEMIA
     Route: 048
  2. LEVOCETIRIZINE DIHYDROCHLORIDE [Concomitant]
     Route: 048
  3. ASPIRIN AND MAGNESIUM OXIDE [Concomitant]
     Route: 048
  4. METOPROLOL SUCCINATE [Concomitant]
     Route: 048
  5. LERCANIDIPINE HYDROCHLORIDE [Concomitant]
     Route: 048
     Dates: end: 20110901

REACTIONS (2)
  - RHABDOMYOLYSIS [None]
  - RENAL FAILURE [None]
